FAERS Safety Report 15065954 (Version 1)
Quarter: 2018Q2

REPORT INFORMATION
  Report Type: Spontaneous
  Country: US (occurrence: US)
  Receive Date: 20180605
  Receipt Date: 20180605
  Transmission Date: 20180711
  Serious: Yes (Disabling, Other)
  Sender: FDA-Public Use
  Company Number: None

PATIENT
  Age: 35 Year
  Sex: Male
  Weight: 121.5 kg

DRUGS (1)
  1. FLUTICASONE PROPIONATE NASAL SPRAY [Suspect]
     Active Substance: FLUTICASONE PROPIONATE
     Dosage: ?          QUANTITY:120 SPRAY(S);?
     Route: 055
     Dates: start: 20050201, end: 20180605

REACTIONS (4)
  - Epistaxis [None]
  - Tinnitus [None]
  - Haemoptysis [None]
  - Product quality issue [None]
